FAERS Safety Report 15085037 (Version 1)
Quarter: 2018Q2

REPORT INFORMATION
  Report Type: Spontaneous
  Country: GB (occurrence: GB)
  Receive Date: 20180628
  Receipt Date: 20180628
  Transmission Date: 20180711
  Serious: Yes (Life-Threatening)
  Sender: FDA-Public Use
  Company Number: GB-ELI_LILLY_AND_COMPANY-GB201806011280

PATIENT
  Age: 52 Year
  Sex: Female
  Weight: 94 kg

DRUGS (9)
  1. METFORMIN HYDROCHLORIDE. [Concomitant]
     Active Substance: METFORMIN HYDROCHLORIDE
     Dosage: UNK, UNKNOWN
     Route: 065
     Dates: start: 2013
  2. CANDESARTAN CILEXETIL. [Concomitant]
     Active Substance: CANDESARTAN CILEXETIL
     Dosage: UNK, UNKNOWN
     Route: 065
     Dates: start: 2014
  3. DESOGESTREL [Concomitant]
     Active Substance: DESOGESTREL
     Dosage: UNK, UNKNOWN
     Route: 065
     Dates: start: 2014
  4. ACETYLSALICYLIC ACID [Concomitant]
     Active Substance: ASPIRIN
     Dosage: UNK, UNKNOWN
     Route: 065
     Dates: start: 2017
  5. PROPRANOLOL HYDROCHLORIDE. [Concomitant]
     Active Substance: PROPRANOLOL HYDROCHLORIDE
     Dosage: UNK, UNKNOWN
     Route: 065
     Dates: start: 2017
  6. LIRAGLUTIDE [Concomitant]
     Active Substance: LIRAGLUTIDE
     Dosage: UNK, UNKNOWN
     Route: 065
     Dates: start: 2017
  7. ABASAGLAR [Suspect]
     Active Substance: INSULIN GLARGINE
     Indication: TYPE 2 DIABETES MELLITUS
     Dosage: 10 IU, UNKNOWN
     Route: 003
     Dates: start: 20180427, end: 20180511
  8. APIDRA [Concomitant]
     Active Substance: INSULIN GLULISINE
     Dosage: UNK, UNKNOWN
     Route: 065
     Dates: start: 2017
  9. MIRTAZAPINE. [Concomitant]
     Active Substance: MIRTAZAPINE
     Dosage: UNK, UNKNOWN
     Route: 065

REACTIONS (3)
  - Oedema peripheral [Recovered/Resolved]
  - Vaginal haemorrhage [Recovered/Resolved]
  - Epistaxis [Recovered/Resolved]

NARRATIVE: CASE EVENT DATE: 20180501
